FAERS Safety Report 20065105 (Version 1)
Quarter: 2021Q4

REPORT INFORMATION
  Report Type: Spontaneous
  Country: US (occurrence: None)
  Receive Date: 20211113
  Receipt Date: 20211113
  Transmission Date: 20220304
  Serious: Yes (Other)
  Sender: FDA-Public Use
  Company Number: US-ROCHE-2956216

PATIENT

DRUGS (1)
  1. ESBRIET [Suspect]
     Active Substance: PIRFENIDONE
     Indication: Idiopathic pulmonary fibrosis
     Dosage: ONGOING-NO
     Route: 065
     Dates: end: 2020

REACTIONS (4)
  - Liver function test decreased [Recovered/Resolved]
  - Hepatic cirrhosis [Unknown]
  - Hepatic failure [Unknown]
  - Drug-induced liver injury [Unknown]
